FAERS Safety Report 20499465 (Version 1)
Quarter: 2022Q1

REPORT INFORMATION
  Report Type: Spontaneous
  Country: CA (occurrence: CA)
  Receive Date: 20220222
  Receipt Date: 20220222
  Transmission Date: 20220423
  Serious: Yes (Hospitalization)
  Sender: FDA-Public Use
  Company Number: None

PATIENT
  Age: 72 Year
  Sex: Male
  Weight: 100 kg

DRUGS (9)
  1. FLUOROURACIL [Suspect]
     Active Substance: FLUOROURACIL
     Indication: Colon cancer metastatic
  2. IRINOTECAN HYDROCHLORIDE [Suspect]
     Active Substance: IRINOTECAN HYDROCHLORIDE
     Indication: Colon cancer metastatic
  3. LEUCOVORIN [Suspect]
     Active Substance: LEUCOVORIN
     Indication: Colon cancer metastatic
  4. ATROPINE [Concomitant]
     Active Substance: ATROPINE
  5. DEXAMETHASONE [Concomitant]
     Active Substance: DEXAMETHASONE
     Route: 014
  6. LOPERAMIDE [Concomitant]
     Active Substance: LOPERAMIDE
  7. LORAZEPAM [Concomitant]
     Active Substance: LORAZEPAM
  8. ONDANSETRON [Concomitant]
     Active Substance: ONDANSETRON
  9. PROCHLORPERAZINE [Concomitant]
     Active Substance: PROCHLORPERAZINE

REACTIONS (2)
  - Clostridium difficile colitis [Recovered/Resolved]
  - Febrile neutropenia [Recovered/Resolved]
